FAERS Safety Report 8552454-7 (Version None)
Quarter: 2012Q3

REPORT INFORMATION
  Report Type: 
  Country: None (occurrence: None)
  Receive Date: 20120731
  Receipt Date: 20120726
  Transmission Date: 20120928
  Serious: Yes (Death, Hospitalization, Other)
  Sender: FDA-Public Use
  Company Number: BR-JNJFOC-20120614311

PATIENT
  Age: 77 Year
  Sex: Female
  Weight: 80 kg

DRUGS (3)
  1. DURAGESIC-100 [Suspect]
     Indication: CANCER PAIN
     Route: 062
  2. XELODA [Concomitant]
     Indication: CHEMOTHERAPY
     Route: 048
  3. ANALGESIC NOS [Suspect]
     Indication: PAIN
     Route: 065

REACTIONS (11)
  - GASTROINTESTINAL PAIN [None]
  - CONSTIPATION [None]
  - VULVOVAGINAL PAIN [None]
  - ADVERSE EVENT [None]
  - DEPRESSION [None]
  - DRUG INEFFECTIVE [None]
  - INAPPROPRIATE SCHEDULE OF DRUG ADMINISTRATION [None]
  - GASTRIC DISORDER [None]
  - VAGINAL CANCER [None]
  - DEATH [None]
  - PRODUCT QUALITY ISSUE [None]
